FAERS Safety Report 5043005-2 (Version None)
Quarter: 2006Q2

REPORT INFORMATION
  Report Type: 
  Country: None (occurrence: None)
  Receive Date: 20060601
  Receipt Date: 20060329
  Transmission Date: 20061013
  Serious: No
  Sender: FDA-Public Use
  Company Number: 2006PV011183

PATIENT
  Age: 58 Year
  Sex: Male
  Weight: 140.6151 kg

DRUGS (2)
  1. BYETTA [Suspect]
     Indication: DIABETES MELLITUS
     Dosage: 5 MCG;BID;SC
     Route: 058
     Dates: start: 20060301
  2. LEVEMIR [Concomitant]

REACTIONS (1)
  - BLOOD GLUCOSE INCREASED [None]
